FAERS Safety Report 10682252 (Version 4)
Quarter: 2015Q3

REPORT INFORMATION
  Report Type: Spontaneous
  Country: US (occurrence: US)
  Receive Date: 20141230
  Receipt Date: 20150722
  Transmission Date: 20151125
  Serious: Yes (Hospitalization, Other)
  Sender: FDA-Public Use
  Company Number: US-AMGEN-USASP2014101437

PATIENT
  Age: 71 Year
  Sex: Female

DRUGS (1)
  1. ENBREL [Suspect]
     Active Substance: ETANERCEPT
     Indication: RHEUMATOID ARTHRITIS
     Dosage: 50 MG, QWK
     Route: 065

REACTIONS (15)
  - Osteoarthritis [Recovered/Resolved]
  - Swelling [Unknown]
  - Spinal column stenosis [Recovered/Resolved]
  - Scoliosis [Recovered/Resolved]
  - Pruritus [Unknown]
  - Injection site swelling [Unknown]
  - Hospitalisation [Recovered/Resolved]
  - Contusion [Not Recovered/Not Resolved]
  - Urosepsis [Recovered/Resolved]
  - Mobility decreased [Recovered/Resolved]
  - Papule [Unknown]
  - Cystitis [Recovered/Resolved]
  - Fall [Recovered/Resolved]
  - Skin haemorrhage [Unknown]
  - Osteoporosis [Recovered/Resolved]

NARRATIVE: CASE EVENT DATE: 201411
